FAERS Safety Report 11455109 (Version 12)
Quarter: 2020Q1

REPORT INFORMATION
  Report Type: Report from Study
  Country: US (occurrence: US)
  Receive Date: 20150903
  Receipt Date: 20200327
  Transmission Date: 20200409
  Serious: Yes (Hospitalization, Other)
  Sender: FDA-Public Use
  Company Number: US-ACTELION-A-NJ2015-123383

PATIENT
  Age: 64 Year
  Sex: Female
  Weight: 67.57 kg

DRUGS (19)
  1. TRACLEER [Suspect]
     Active Substance: BOSENTAN
     Dosage: 62.5 UNK
     Route: 048
  2. PROCRIT [Concomitant]
     Active Substance: ERYTHROPOIETIN
  3. PREDNISONE. [Concomitant]
     Active Substance: PREDNISONE
     Dosage: 5 MG, QD
     Route: 048
  4. LORAZEPAM. [Concomitant]
     Active Substance: LORAZEPAM
     Dosage: 1 MG, PRN
  5. NYSTATIN. [Concomitant]
     Active Substance: NYSTATIN
  6. DILTIAZEM. [Concomitant]
     Active Substance: DILTIAZEM
  7. NASCOBAL [Concomitant]
     Active Substance: CYANOCOBALAMIN
  8. BONIVA [Concomitant]
     Active Substance: IBANDRONATE SODIUM
     Dosage: 150 MG, Q1MONTH
  9. CELLCEPT [Concomitant]
     Active Substance: MYCOPHENOLATE MOFETIL\MYCOPHENOLATE MOFETIL HYDROCHLORIDE
     Dosage: 500 MG, BID
  10. CORVITE [Concomitant]
     Dosage: UNK, QD
  11. METFORMIN [Concomitant]
     Active Substance: METFORMIN HYDROCHLORIDE
     Dosage: 500 MG, BID
  12. TRACLEER [Suspect]
     Active Substance: BOSENTAN
     Indication: PULMONARY ARTERIAL HYPERTENSION
     Dosage: 62.5 MG, BID
     Route: 048
     Dates: start: 20091231
  13. CLARITIN [Concomitant]
     Active Substance: LORATADINE
     Dosage: 10 MG, QD
  14. LEVETIRACETAM. [Concomitant]
     Active Substance: LEVETIRACETAM
     Dosage: 100 MG, BID
  15. OMEPRAZOLE. [Concomitant]
     Active Substance: OMEPRAZOLE
     Dosage: 20 MG, QD
  16. ONFI [Concomitant]
     Active Substance: CLOBAZAM
     Dosage: 10 MG, BID
  17. ZYRTEC [Concomitant]
     Active Substance: CETIRIZINE HYDROCHLORIDE
     Dosage: 10 MG, QD
  18. TRACLEER [Suspect]
     Active Substance: BOSENTAN
     Dosage: 62.5 MG, BID
     Route: 048
  19. DIVALPROEX [Concomitant]
     Active Substance: DIVALPROEX SODIUM
     Dosage: 250 MG

REACTIONS (23)
  - Seizure [Unknown]
  - Foot fracture [Unknown]
  - Weight decreased [Unknown]
  - Face injury [Unknown]
  - Central nervous system lupus [Unknown]
  - Syncope [Unknown]
  - Respiratory failure [Unknown]
  - Balance disorder [Unknown]
  - Injury [Unknown]
  - Facial pain [Unknown]
  - Fatigue [Unknown]
  - Ankle fracture [Unknown]
  - Jaw fracture [Unknown]
  - Pulmonary fibrosis [Unknown]
  - Petit mal epilepsy [Unknown]
  - Vein disorder [Unknown]
  - Cough [Unknown]
  - Femur fracture [Unknown]
  - Fall [Unknown]
  - Back injury [Unknown]
  - Systemic lupus erythematosus [Unknown]
  - Erythema [Unknown]
  - Loss of consciousness [Unknown]

NARRATIVE: CASE EVENT DATE: 20160504
